FAERS Safety Report 9688663 (Version 1)
Quarter: 2013Q4

REPORT INFORMATION
  Report Type: Spontaneous
  Country: GB (occurrence: GB)
  Receive Date: 20131114
  Receipt Date: 20131114
  Transmission Date: 20140711
  Serious: Yes (Death, Congenital Anomaly)
  Sender: FDA-Public Use
  Company Number: PHHY2013GB128782

PATIENT
  Sex: Female

DRUGS (1)
  1. CITALOPRAM [Suspect]
     Dosage: 60 MG, QD
     Route: 064

REACTIONS (3)
  - Foetal death [Fatal]
  - Congenital anomaly [Fatal]
  - Foetal exposure during pregnancy [Fatal]
